FAERS Safety Report 4501121-5 (Version None)
Quarter: 2004Q4

REPORT INFORMATION
  Report Type: 
  Country: None (occurrence: None)
  Receive Date: 20041115
  Receipt Date: 20041108
  Transmission Date: 20050328
  Serious: Yes (Death)
  Sender: FDA-Public Use
  Company Number: BE-JNJFOC-20041103326

PATIENT
  Age: 80 Year
  Sex: Female

DRUGS (1)
  1. PROPULSID [Suspect]
     Route: 049
     Dates: start: 20040313

REACTIONS (1)
  - DEATH [None]
